FAERS Safety Report 24262251 (Version 1)
Quarter: 2024Q3

REPORT INFORMATION
  Report Type: Spontaneous
  Country: US (occurrence: US)
  Receive Date: 20240829
  Receipt Date: 20240829
  Transmission Date: 20241017
  Serious: Yes (Death, Hospitalization, Other)
  Sender: SANDOZ
  Company Number: US-002147023-NVSC2019US053745

PATIENT
  Age: 16 Year
  Sex: Male

DRUGS (14)
  1. ABATACEPT [Suspect]
     Active Substance: ABATACEPT
     Indication: Protein deficiency
     Dosage: UNK (2 DOSES)
     Route: 065
  2. CYCLOSPORINE [Suspect]
     Active Substance: CYCLOSPORINE
     Indication: Immunosuppressant drug therapy
     Dosage: UNK
     Route: 065
  3. CYCLOSPORINE [Suspect]
     Active Substance: CYCLOSPORINE
     Dosage: INCREASES IN IST (HIGH-DOSE STEROIDS)
     Route: 065
  4. IMURAN [Suspect]
     Active Substance: AZATHIOPRINE
     Indication: Product used for unknown indication
     Dosage: INCREASES IN IST (HIGH-DOSE STEROIDS)
     Route: 065
  5. IMURAN [Suspect]
     Active Substance: AZATHIOPRINE
     Route: 065
  6. MYCOPHENOLATE MOFETIL [Suspect]
     Active Substance: MYCOPHENOLATE MOFETIL
     Dosage: UNK
     Route: 065
  7. MYCOPHENOLATE MOFETIL [Suspect]
     Active Substance: MYCOPHENOLATE MOFETIL
     Indication: Immunosuppressant drug therapy
     Dosage: HIGH-DOSE
     Route: 065
  8. MYCOPHENOLATE MOFETIL [Suspect]
     Active Substance: MYCOPHENOLATE MOFETIL
     Dosage: STABLE LOW DOSES
     Route: 065
  9. RITUXIMAB [Suspect]
     Active Substance: RITUXIMAB
     Dosage: INCREASES IN IST (HIGH-DOSE STEROIDS)
     Route: 065
  10. RITUXIMAB [Suspect]
     Active Substance: RITUXIMAB
     Indication: Product used for unknown indication
     Route: 065
  11. SIROLIMUS [Suspect]
     Active Substance: SIROLIMUS
     Indication: Immunosuppressant drug therapy
     Route: 065
  12. FOSCARNET [Concomitant]
     Active Substance: FOSCARNET
     Indication: Cytomegalovirus infection
     Dosage: UNK
     Route: 065
  13. FOSCARNET [Concomitant]
     Active Substance: FOSCARNET
     Indication: Cytomegalovirus infection
     Route: 065
  14. HUMAN IMMUNOGLOBULIN G [Concomitant]
     Active Substance: HUMAN IMMUNOGLOBULIN G
     Indication: Immunodeficiency common variable
     Route: 042

REACTIONS (5)
  - Cytomegalovirus infection [Fatal]
  - Condition aggravated [Fatal]
  - Aplasia pure red cell [Fatal]
  - Acquired amegakaryocytic thrombocytopenia [Fatal]
  - Drug ineffective [Unknown]
